FAERS Safety Report 7874540-7 (Version None)
Quarter: 2011Q4

REPORT INFORMATION
  Report Type: 
  Country: None (occurrence: None)
  Receive Date: 20111030
  Receipt Date: 20111018
  Transmission Date: 20120403
  Serious: Yes (Other)
  Sender: FDA-Public Use
  Company Number: JP-SANOFI-AVENTIS-2011SA070634

PATIENT
  Age: 87 Year
  Sex: Female

DRUGS (5)
  1. PROTECADIN [Suspect]
     Indication: GASTROINTESTINAL DISORDER
     Route: 065
     Dates: start: 20110908, end: 20110915
  2. PLAVIX [Suspect]
     Indication: CEREBRAL INFARCTION
     Route: 065
     Dates: start: 20110908, end: 20110915
  3. NICHISTATE [Concomitant]
     Indication: CEREBRAL INFARCTION
  4. PRAVASTATIN SODIUM [Concomitant]
  5. MEIACT [Concomitant]
     Dates: start: 20110912, end: 20110915

REACTIONS (2)
  - RHABDOMYOLYSIS [None]
  - BLOOD CREATINE PHOSPHOKINASE INCREASED [None]
